FAERS Safety Report 22643412 (Version 1)
Quarter: 2023Q2

REPORT INFORMATION
  Report Type: Report from Study
  Country: CA (occurrence: CA)
  Receive Date: 20230627
  Receipt Date: 20230627
  Transmission Date: 20230722
  Serious: Yes (Other)
  Sender: FDA-Public Use
  Company Number: CA-CELLTRION INC.-2023CA012940

PATIENT

DRUGS (1)
  1. TRUXIMA [Suspect]
     Active Substance: RITUXIMAB-ABBS
     Indication: Central nervous system lymphoma
     Dosage: 600 MG EVERY 7 DAYS X 6 DOSES (6X500MG/VIAL + 6X100MG/VIAL = 3600MG)

REACTIONS (2)
  - Central nervous system lymphoma [Unknown]
  - Off label use [Unknown]
